FAERS Safety Report 20430253 (Version 1)
Quarter: 2022Q1

REPORT INFORMATION
  Report Type: Report from Study
  Country: FR (occurrence: FR)
  Receive Date: 20220204
  Receipt Date: 20220204
  Transmission Date: 20220423
  Serious: Yes (Hospitalization, Other)
  Sender: FDA-Public Use
  Company Number: FR-SERVIER-S20004605

PATIENT

DRUGS (6)
  1. PEGASPARGASE [Suspect]
     Active Substance: PEGASPARGASE
     Indication: Acute lymphocytic leukaemia
     Dosage: 3300 IU, ON DAY 4
     Route: 042
     Dates: start: 20180330, end: 20180330
  2. PEGASPARGASE [Suspect]
     Active Substance: PEGASPARGASE
     Dosage: 3300 IU, ON DAY 43
     Route: 042
     Dates: start: 20180522, end: 20180522
  3. TN UNSPECIFIED [Concomitant]
     Indication: Acute lymphocytic leukaemia
     Dosage: 2MG, D1, D8, D15, D43, D50
     Route: 042
     Dates: start: 20180326, end: 20180529
  4. TN UNSPECIFIED [Concomitant]
     Indication: Acute lymphocytic leukaemia
     Dosage: 13.3 MG, D1 TO D7, D15 TO D21
     Route: 048
     Dates: start: 20180326, end: 20180429
  5. TN UNSPECIFIED [Concomitant]
     Indication: Acute lymphocytic leukaemia
     Dosage: 33.2 MG, D1, D8, D15
     Route: 042
     Dates: start: 20180326, end: 20180423
  6. TN UNSPECIFIED [Concomitant]
     Indication: Acute lymphocytic leukaemia
     Dosage: 30 MG, D4
     Route: 037
     Dates: start: 20180330

REACTIONS (4)
  - Hyperglycaemia [Recovered/Resolved]
  - Febrile bone marrow aplasia [Recovered/Resolved]
  - Sepsis [Recovered/Resolved]
  - Escherichia urinary tract infection [Recovered/Resolved]

NARRATIVE: CASE EVENT DATE: 20180411
